FAERS Safety Report 10133843 (Version 2)
Quarter: 2014Q2

REPORT INFORMATION
  Report Type: Spontaneous
  Country: JP (occurrence: JP)
  Receive Date: 20140428
  Receipt Date: 20140529
  Transmission Date: 20141212
  Serious: Yes (Life-Threatening)
  Sender: FDA-Public Use
  Company Number: JP-ASTRAZENECA-2014SE28232

PATIENT
  Age: 36 Year
  Sex: Female

DRUGS (2)
  1. NEXIUM [Suspect]
     Route: 048
  2. EPADEL [Suspect]
     Dosage: DOSE UNKNOWN
     Route: 048

REACTIONS (2)
  - Granulocytopenia [Recovered/Resolved]
  - Influenza [Unknown]
